FAERS Safety Report 12606369 (Version 1)
Quarter: 2016Q3

REPORT INFORMATION
  Report Type: Spontaneous
  Country: US (occurrence: None)
  Receive Date: 20160728
  Receipt Date: 20160728
  Transmission Date: 20161109
  Serious: Yes (Hospitalization)
  Sender: FDA-Public Use
  Company Number: None

PATIENT
  Age: 82 Year
  Sex: Female

DRUGS (25)
  1. NINLARO [Suspect]
     Active Substance: IXAZOMIB
     Indication: PLASMA CELL MYELOMA
     Dosage: 3MG 1PO QW X 3W PO
     Route: 048
     Dates: start: 20160704, end: 20160713
  2. ATROVASTATIN [Concomitant]
     Active Substance: ATORVASTATIN CALCIUM
  3. DILTIAZAM CD [Concomitant]
     Active Substance: DILTIAZEM
  4. FLONASE [Concomitant]
     Active Substance: FLUTICASONE PROPIONATE
  5. OMEPRAZOLE. [Concomitant]
     Active Substance: OMEPRAZOLE
  6. ALPRAZOLAM. [Concomitant]
     Active Substance: ALPRAZOLAM
  7. VITAMIN C [Concomitant]
     Active Substance: ASCORBIC ACID
  8. VITAMIN D [Concomitant]
     Active Substance: CHOLECALCIFEROL
  9. REVLIMID [Concomitant]
     Active Substance: LENALIDOMIDE
  10. ACUCLOVIR [Concomitant]
  11. NITROSTAT [Concomitant]
     Active Substance: NITROGLYCERIN
  12. ACETAMINOPHIN [Concomitant]
  13. VIACTIVE (CALCIUM) [Concomitant]
     Active Substance: CALCIUM\VITAMIN D\VITAMIN K5
  14. ZOMETA [Concomitant]
     Active Substance: ZOLEDRONIC ACID
  15. BENAZEPRIL [Concomitant]
     Active Substance: BENAZEPRIL HYDROCHLORIDE
  16. DEXAMETHASONE. [Concomitant]
     Active Substance: DEXAMETHASONE
  17. DICLOFENAX [Concomitant]
  18. MAGNESIUM [Concomitant]
     Active Substance: MAGNESIUM
  19. MULTIVITAMIN [Concomitant]
     Active Substance: VITAMINS
  20. PREDNISONE. [Concomitant]
     Active Substance: PREDNISONE
  21. PROCHLORPERAZINE. [Concomitant]
     Active Substance: PROCHLORPERAZINE
  22. MOXIFLOXACIN. [Concomitant]
     Active Substance: MOXIFLOXACIN
  23. ASPIRIN. [Concomitant]
     Active Substance: ASPIRIN
  24. VITAMIN B COMPLEX WITH C [Concomitant]
     Active Substance: ASCORBIC ACID\CALCIUM PANTOTHENATE\CYANOCOBALAMIN\NIACINAMIDE\PYRIDOXINE HYDROCHLORIDE\RIBOFLAVIN\THIAMINE MONONITRATE
  25. LORATADINE. [Concomitant]
     Active Substance: LORATADINE

REACTIONS (1)
  - Pneumonia [None]

NARRATIVE: CASE EVENT DATE: 20160704
